FAERS Safety Report 7805359-0 (Version None)
Quarter: 2011Q4

REPORT INFORMATION
  Report Type: 
  Country: None (occurrence: None)
  Receive Date: 20111010
  Receipt Date: 20110927
  Transmission Date: 20120403
  Serious: Yes (Hospitalization)
  Sender: FDA-Public Use
  Company Number: FR-MYLANLABS-2011S1020543

PATIENT
  Age: 72 Year
  Sex: Female

DRUGS (6)
  1. FLECAINIDE ACETATE [Suspect]
     Route: 048
  2. FLECAINIDE ACETATE [Suspect]
     Indication: INTENTIONAL OVERDOSE
     Dosage: EMPTY `PLATE' OF 15 TABLETS (100MG) FOUND AT THE SCENE
     Route: 048
  3. FLECAINIDE ACETATE [Suspect]
     Indication: CARDIAC DISORDER
     Dosage: EMPTY `PLATE' OF 15 TABLETS (100MG) FOUND AT THE SCENE
     Route: 048
  4. FLECAINIDE ACETATE [Suspect]
     Route: 048
  5. OXAZEPAM [Suspect]
     Indication: INTENTIONAL OVERDOSE
     Route: 048
  6. LEVOTHYROXINE SODIUM [Suspect]
     Indication: INTENTIONAL OVERDOSE
     Route: 048

REACTIONS (5)
  - HYPOTENSION [None]
  - INTENTIONAL OVERDOSE [None]
  - ELECTROCARDIOGRAM QT PROLONGED [None]
  - SHOCK [None]
  - ELECTROCARDIOGRAM QRS COMPLEX PROLONGED [None]
